FAERS Safety Report 18077477 (Version 1)
Quarter: 2020Q3

REPORT INFORMATION
  Report Type: Spontaneous
  Country: DE (occurrence: DE)
  Receive Date: 20200728
  Receipt Date: 20200728
  Transmission Date: 20201103
  Serious: Yes (Hospitalization)
  Sender: FDA-Public Use
  Company Number: DE-ALKEM LABORATORIES LIMITED-DE-ALKEM-2020-01386

PATIENT
  Age: 30 Month
  Sex: Male
  Weight: 14 kg

DRUGS (1)
  1. CEFUROXIME AXETIL. [Suspect]
     Active Substance: CEFUROXIME AXETIL
     Indication: PRODUCT USED FOR UNKNOWN INDICATION
     Dosage: UNK (EVERY)
     Route: 065
     Dates: start: 20191226

REACTIONS (1)
  - Urticaria [Recovered/Resolved]

NARRATIVE: CASE EVENT DATE: 20191229
